FAERS Safety Report 14015457 (Version 2)
Quarter: 2017Q4

REPORT INFORMATION
  Report Type: Spontaneous
  Country: US (occurrence: US)
  Receive Date: 20170927
  Receipt Date: 20171115
  Transmission Date: 20180321
  Serious: Yes (Other)
  Sender: FDA-Public Use
  Company Number: US-ALKERMES INC.-ALK-2017-003959

PATIENT
  Age: 44 Year
  Sex: Female
  Weight: 51.25 kg

DRUGS (2)
  1. VIVITROL [Suspect]
     Active Substance: NALTREXONE
     Indication: ALCOHOLISM
     Dosage: 380 MG, QMO
     Route: 030
     Dates: start: 20170731, end: 20170907
  2. NALTREXONE [Suspect]
     Active Substance: NALTREXONE
     Indication: PRODUCT USED FOR UNKNOWN INDICATION
     Dosage: 50 MG, QD

REACTIONS (9)
  - Vascular injury [Unknown]
  - Injection site hypoaesthesia [Recovered/Resolved]
  - Injection site induration [Recovered/Resolved]
  - Injection site oedema [Unknown]
  - Bursitis [Unknown]
  - Vasculitis [Unknown]
  - Drug administered at inappropriate site [Unknown]
  - Injection site reaction [Recovered/Resolved]
  - Injection site mass [Recovered/Resolved]
